FAERS Safety Report 5358854-0 (Version None)
Quarter: 2007Q2

REPORT INFORMATION
  Report Type: 
  Country: None (occurrence: None)
  Receive Date: 20070615
  Receipt Date: 20070605
  Transmission Date: 20071010
  Serious: Yes (Other)
  Sender: FDA-Public Use
  Company Number: CA-ROCHE-500828

PATIENT
  Age: 37 Year
  Sex: Male

DRUGS (6)
  1. CLONAZEPAM [Suspect]
     Indication: DRUG USE FOR UNKNOWN INDICATION
     Route: 065
  2. CITALOPRAM HYDROBROMIDE [Suspect]
     Indication: DRUG USE FOR UNKNOWN INDICATION
     Route: 065
  3. LINEZOLID [Suspect]
     Indication: DRUG USE FOR UNKNOWN INDICATION
     Dosage: TRADE NAME REPORTED AS ZYVOXAM
     Route: 065
  4. TRAZODONE HCL [Suspect]
     Indication: DRUG USE FOR UNKNOWN INDICATION
     Route: 048
  5. HYDROMORPHONE HCL [Concomitant]
  6. OLANZAPINE [Concomitant]

REACTIONS (9)
  - ANXIETY [None]
  - HOT FLUSH [None]
  - HYPERHIDROSIS [None]
  - HYPERTENSION [None]
  - HYPOAESTHESIA [None]
  - PALPITATIONS [None]
  - PANIC REACTION [None]
  - SEROTONIN SYNDROME [None]
  - TREMOR [None]
